FAERS Safety Report 16389269 (Version 1)
Quarter: 2019Q2

REPORT INFORMATION
  Report Type: Spontaneous
  Country: CN (occurrence: CN)
  Receive Date: 20190604
  Receipt Date: 20190604
  Transmission Date: 20190711
  Serious: Yes (Hospitalization)
  Sender: FDA-Public Use
  Company Number: CN-PFIZER INC-2019230088

PATIENT
  Age: 57 Year
  Sex: Male
  Weight: 55 kg

DRUGS (5)
  1. BUTYLPHTHALIDE [Suspect]
     Active Substance: BUTYLPHTHALIDE
     Indication: COLLATERAL CIRCULATION
  2. LIPITOR [Suspect]
     Active Substance: ATORVASTATIN CALCIUM
     Indication: CEREBROVASCULAR DISORDER
     Dosage: 1 DF, 1X/DAY
     Route: 048
     Dates: start: 20190428, end: 20190503
  3. BUTYLPHTHALIDE [Suspect]
     Active Substance: BUTYLPHTHALIDE
     Indication: CEREBRAL INFARCTION
     Dosage: 100 ML, 2X/DAY
     Route: 041
     Dates: start: 20190428, end: 20190503
  4. CITICOLINE SODIUM [Concomitant]
     Active Substance: CITICOLINE SODIUM
     Indication: CEREBROVASCULAR DISORDER
     Dosage: 0.5 G, 1X/DAY
     Route: 041
     Dates: start: 20190428, end: 20190528
  5. LIPITOR [Suspect]
     Active Substance: ATORVASTATIN CALCIUM
     Indication: LIPIDS DECREASED

REACTIONS (2)
  - Hepatic function abnormal [Recovering/Resolving]
  - Renal impairment [Recovering/Resolving]

NARRATIVE: CASE EVENT DATE: 20190503
